FAERS Safety Report 4793575-4 (Version None)
Quarter: 2005Q4

REPORT INFORMATION
  Report Type: 
  Country: None (occurrence: None)
  Receive Date: 20051006
  Receipt Date: 20050923
  Transmission Date: 20060501
  Serious: Yes (Hospitalization, Other)
  Sender: FDA-Public Use
  Company Number: KII-2005-0018752

PATIENT
  Age: 54 Year
  Sex: Female

DRUGS (2)
  1. OXYCODONE HCL [Suspect]
     Dosage: ORAL
     Route: 048
  2. ACETAMINOPHEN W/ CODEINE [Suspect]
     Dosage: ORAL
     Route: 048

REACTIONS (5)
  - DEHYDRATION [None]
  - HYPERKALAEMIA [None]
  - LOSS OF CONSCIOUSNESS [None]
  - MENTAL STATUS CHANGES [None]
  - RENAL FAILURE ACUTE [None]
